FAERS Safety Report 12820405 (Version 1)
Quarter: 2016Q4

REPORT INFORMATION
  Report Type: Report from Study
  Country: US (occurrence: US)
  Receive Date: 20161006
  Receipt Date: 20161006
  Transmission Date: 20170207
  Serious: Yes (Hospitalization, Other)
  Sender: FDA-Public Use
  Company Number: US-SA-2015SA110757

PATIENT
  Age: 55 Year
  Sex: Male

DRUGS (2)
  1. LEMTRADA [Suspect]
     Active Substance: ALEMTUZUMAB
     Indication: MULTIPLE SCLEROSIS
     Route: 041
     Dates: start: 20160720, end: 20160722
  2. LEMTRADA [Suspect]
     Active Substance: ALEMTUZUMAB
     Indication: MULTIPLE SCLEROSIS
     Route: 041
     Dates: start: 20150608, end: 20150612

REACTIONS (19)
  - Hallucination [Recovering/Resolving]
  - Abasia [Not Recovered/Not Resolved]
  - Contusion [Unknown]
  - Confusional state [Recovering/Resolving]
  - Lethargy [Recovering/Resolving]
  - Blood glucose increased [Recovering/Resolving]
  - Decubitus ulcer [Not Recovered/Not Resolved]
  - Decreased appetite [Recovering/Resolving]
  - Urinary incontinence [Recovering/Resolving]
  - Anal incontinence [Recovering/Resolving]
  - Urinary tract infection [Unknown]
  - Blister infected [Unknown]
  - Dysstasia [Not Recovered/Not Resolved]
  - Arthralgia [Not Recovered/Not Resolved]
  - Wheezing [Not Recovered/Not Resolved]
  - Speech disorder [Recovering/Resolving]
  - Gastrointestinal motility disorder [Not Recovered/Not Resolved]
  - Wheelchair user [Not Recovered/Not Resolved]
  - Oedema peripheral [Not Recovered/Not Resolved]

NARRATIVE: CASE EVENT DATE: 2015
